FAERS Safety Report 19570174 (Version 1)
Quarter: 2021Q3

REPORT INFORMATION
  Report Type: Report from Study
  Country: CA (occurrence: CA)
  Receive Date: 20210716
  Receipt Date: 20210716
  Transmission Date: 20211014
  Serious: Yes (Death, Hospitalization)
  Sender: FDA-Public Use
  Company Number: CA-BEH-2021133279

PATIENT
  Age: 72 Year
  Sex: Male
  Weight: 88 kg

DRUGS (1)
  1. HIZENTRA [Suspect]
     Active Substance: HUMAN IMMUNOGLOBULIN G
     Indication: SECONDARY IMMUNODEFICIENCY
     Dosage: 8 GRAM, QW
     Route: 065
     Dates: start: 20201004

REACTIONS (7)
  - No adverse event [Unknown]
  - Sepsis [Unknown]
  - Product dose omission issue [Unknown]
  - Osteomyelitis [Unknown]
  - Death [Fatal]
  - General physical health deterioration [Unknown]
  - Arthritis infective [Unknown]

NARRATIVE: CASE EVENT DATE: 20210618
